FAERS Safety Report 9571016 (Version 2)
Quarter: 2013Q4

REPORT INFORMATION
  Report Type: Spontaneous
  Country: US (occurrence: US)
  Receive Date: 20131001
  Receipt Date: 20131001
  Transmission Date: 20140711
  Serious: Yes (Other)
  Sender: FDA-Public Use
  Company Number: US-AMGEN-USASP2013051653

PATIENT
  Age: 58 Year
  Sex: Male
  Weight: 88.44 kg

DRUGS (7)
  1. ENBREL [Suspect]
     Indication: PRODUCT USED FOR UNKNOWN INDICATION
     Dosage: 50 MG, QWK
     Route: 058
     Dates: end: 20130613
  2. ENBREL [Suspect]
     Dosage: UNK
     Route: 058
  3. METHOTREXATE [Concomitant]
     Dosage: UNK
  4. SYNTHROID [Concomitant]
     Dosage: 100 MUG, UNK
  5. MELOXICAM [Concomitant]
     Dosage: 7.5 MG, UNK
  6. XALATAN [Concomitant]
     Dosage: 0.005 %, UNK
  7. FOLIC ACID [Concomitant]
     Dosage: 5 MG, UNK

REACTIONS (2)
  - Renal cancer [Unknown]
  - Nephrolithiasis [Unknown]
